FAERS Safety Report 12240333 (Version 3)
Quarter: 2016Q4

REPORT INFORMATION
  Report Type: Spontaneous
  Country: US (occurrence: US)
  Receive Date: 20160405
  Receipt Date: 20161227
  Transmission Date: 20170207
  Serious: No
  Sender: FDA-Public Use
  Company Number: US-PFIZER INC-2016075944

PATIENT
  Age: 54 Year
  Sex: Female

DRUGS (25)
  1. LORTAB [Concomitant]
     Active Substance: ACETAMINOPHEN\HYDROCODONE BITARTRATE
     Indication: PAIN
     Dosage: 1 DF, AS NEEDED (HYDROCODONE: 10MG; ACETAMINOPHEN: 325MG) (MORNING, AFTERNOON, EVENING)
     Route: 048
  2. ELAVIL [Concomitant]
     Active Substance: AMITRIPTYLINE HYDROCHLORIDE
     Dosage: 10 MG, 1X/DAY (NIGHTLY/BEDTIME)
     Route: 048
  3. LASIX [Concomitant]
     Active Substance: FUROSEMIDE
     Dosage: 40 MG, 1X/DAY (MORNING)
     Route: 048
  4. NEURONTIN [Concomitant]
     Active Substance: GABAPENTIN
     Dosage: 300 MG, 1X/DAY (MORNING)
  5. ZANAFLEX [Concomitant]
     Active Substance: TIZANIDINE HYDROCHLORIDE
     Dosage: 4 MG, 3X/DAY (BEDTIME)
     Route: 048
  6. LYRICA [Suspect]
     Active Substance: PREGABALIN
     Indication: FIBROMYALGIA
     Dosage: 200 MG, 2X/DAY (MORNING, EVENING)
     Route: 048
  7. VICODIN [Concomitant]
     Active Substance: ACETAMINOPHEN\HYDROCODONE BITARTRATE
     Indication: PAIN
     Dosage: 1 DF, AS NEEDED ((HYDROCODONE: 10MG; ACETAMINOPHEN: 325MG) (MORNING, AFTERNOON, EVENING, BEDTIME)
     Route: 048
  8. LIORESAL [Concomitant]
     Active Substance: BACLOFEN
     Dosage: 10 MG, 3X/DAY (MORNING, AFTERNOON, EVENING)
     Route: 048
  9. BIOTIN [Concomitant]
     Active Substance: BIOTIN
     Dosage: UNK UNK, 1X/DAY (MORNING)
     Route: 048
  10. BUSPAR [Concomitant]
     Active Substance: BUSPIRONE HYDROCHLORIDE
     Dosage: 10 MG, 3X/DAY (MORNING, AFTERNOON, EVENING)
     Route: 048
  11. ZOLOFT [Concomitant]
     Active Substance: SERTRALINE HYDROCHLORIDE
     Dosage: 350 MG, 1X/DAY (MORNING)
     Route: 048
  12. FOLVITE [Concomitant]
     Active Substance: FOLIC ACID
     Dosage: 400 UG, 1X/DAY (MORNING)
     Route: 048
  13. LEVOTHROID [Concomitant]
     Active Substance: LEVOTHYROXINE SODIUM
     Indication: HYPOTHYROIDISM
     Dosage: 175 UG, 1X/DAY (MORNING)
     Route: 048
  14. CLOACA [Concomitant]
     Dosage: 50 MG, AS NEEDED (TAKE 50 MG BY MOUTH 2 (TWO) TIMES DAILY)
     Route: 048
  15. FERROUS SULFATE. [Concomitant]
     Active Substance: FERROUS SULFATE
     Dosage: 325 MG, 1X/DAY (TAKE 325MG BY MOUTH DAILY WITH BREAKFAST; MORNING)
     Route: 048
  16. CYTOMEL [Concomitant]
     Active Substance: LIOTHYRONINE SODIUM
     Indication: HYPOTHYROIDISM
     Dosage: 5 UG, 1X/DAY (MORNING)
     Route: 048
  17. PENNSAID [Concomitant]
     Active Substance: DICLOFENAC SODIUM
     Indication: PAIN
     Dosage: UNK UNK, AS NEEDED
     Route: 061
  18. VITAMIN B-1 [Concomitant]
     Active Substance: THIAMINE
     Dosage: 100 MG, 1X/DAY (MORNING)
     Route: 048
  19. VITAMIN B12 [Concomitant]
     Active Substance: CYANOCOBALAMIN
     Dosage: 1000 UG, 1X/DAY (MORNING)
     Route: 048
  20. CALTRATE PLUS-D [Concomitant]
     Dosage: 1 DF, 2X/DAY (MORNING)
     Route: 048
  21. SYNTHROID [Concomitant]
     Active Substance: LEVOTHYROXINE SODIUM
     Indication: HYPOTHYROIDISM
     Dosage: 175 MG, 1X/DAY (MORNING)
     Route: 048
  22. MIRAPEX [Concomitant]
     Active Substance: PRAMIPEXOLE DIHYDROCHLORIDE
     Indication: RESTLESS LEGS SYNDROME
     Dosage: 0.25 MG, 3X/DAY (MORNING, AFTERNOON, EVENING)
     Route: 048
  23. LYRICA [Suspect]
     Active Substance: PREGABALIN
     Indication: POLYNEUROPATHY
     Dosage: 200 MG, 2X/DAY
     Route: 048
     Dates: start: 20160504
  24. MAGNESIUM [Concomitant]
     Active Substance: MAGNESIUM
     Dosage: UNK UNK, 1X/DAY  (MORNING)
     Route: 048
  25. ALDACTONE [Concomitant]
     Active Substance: SPIRONOLACTONE
     Dosage: 50 MG, 1X/DAY (MORNING)
     Route: 048

REACTIONS (1)
  - Feeling abnormal [Unknown]
